FAERS Safety Report 24164106 (Version 2)
Quarter: 2025Q3

REPORT INFORMATION
  Report Type: Report from Study
  Country: RU (occurrence: RU)
  Receive Date: 20240801
  Receipt Date: 20250820
  Transmission Date: 20251021
  Serious: Yes (Other)
  Sender: TEVA
  Company Number: RU-TEVA-VS-3226165

PATIENT
  Age: 60 Year
  Sex: Male

DRUGS (2)
  1. CISPLATIN [Suspect]
     Active Substance: CISPLATIN
     Indication: Nasopharyngeal cancer stage III
     Dosage: RECEIVED 3 CYCLES
     Route: 065
  2. DOCETAXEL [Suspect]
     Active Substance: DOCETAXEL
     Indication: Nasopharyngeal cancer stage III
     Dosage: RECEIVED 3 CYCLES OF DOCETAXEL 60-75 MG/M2
     Route: 065

REACTIONS (1)
  - Acute kidney injury [Unknown]
